FAERS Safety Report 4450855-X (Version None)
Quarter: 2004Q3

REPORT INFORMATION
  Report Type: 
  Country: None (occurrence: None)
  Receive Date: 20040916
  Receipt Date: 20011002
  Transmission Date: 20050211
  Serious: Yes (Other)
  Sender: FDA-Public Use
  Company Number: US-BRISTOL-MYERS SQUIBB COMPANY-11057064

PATIENT
  Age: 4 Decade
  Sex: Female

DRUGS (7)
  1. STADOL [Suspect]
     Indication: MIGRAINE
     Route: 045
  2. STADOL [Suspect]
     Dosage: ROUTE OF ADMINISTRATION:  INJECTION
  3. PROPOXYPHENE NAPSYLATE [Concomitant]
  4. AMITRIPTYLINE HCL [Concomitant]
  5. PHENERGAN HCL [Concomitant]
  6. BUTALBITAL + CAFFEINE + ACETAMINOPHEN [Concomitant]
  7. ULTRAM [Concomitant]

REACTIONS (2)
  - DEPENDENCE [None]
  - DRUG WITHDRAWAL SYNDROME [None]
